FAERS Safety Report 6913938-8 (Version None)
Quarter: 2010Q3

REPORT INFORMATION
  Report Type: 
  Country: None (occurrence: None)
  Receive Date: 20100809
  Receipt Date: 20100730
  Transmission Date: 20110219
  Serious: Yes (Hospitalization)
  Sender: FDA-Public Use
  Company Number: JP-BRISTOL-MYERS SQUIBB COMPANY-15194160

PATIENT
  Age: 72 Year
  Sex: Female
  Weight: 60 kg

DRUGS (13)
  1. ERBITUX [Suspect]
     Indication: RECTAL CANCER
     Dosage: 12MAR10 400MG/M2,19MAR10 DOSE REDUCED TO 250 MG/M2
     Route: 041
     Dates: start: 20100312, end: 20100531
  2. IRINOTECAN HCL [Concomitant]
     Indication: RECTAL CANCER
     Dosage: FOLLOWED BY 120 MG/M2
     Route: 041
     Dates: start: 20100326, end: 20100531
  3. EBRANTIL [Concomitant]
     Indication: HYPERTENSION
     Route: 048
  4. ALINAMIN-F [Concomitant]
     Indication: NEUROPATHY PERIPHERAL
     Dosage: TABS
     Route: 048
     Dates: start: 20100101
  5. GASTER D [Concomitant]
     Indication: GASTRIC ULCER
     Route: 048
     Dates: start: 20100101
  6. SEPAMIT R [Concomitant]
     Indication: HYPERTENSION
     Dosage: CAPS
     Route: 048
     Dates: start: 20100101
  7. THEO-DUR [Concomitant]
     Indication: ASTHMA
     Dosage: TABS
     Route: 048
     Dates: start: 20100101
  8. VESICARE [Concomitant]
     Indication: DYSURIA
     Route: 048
     Dates: start: 20100101
  9. DEPAS [Concomitant]
     Indication: NEURALGIA
     Route: 048
  10. CEROCRAL [Concomitant]
     Indication: DIZZINESS
     Route: 048
     Dates: start: 20100101
  11. PYDOXAL [Concomitant]
     Indication: NEUROPATHY PERIPHERAL
     Route: 048
     Dates: start: 20100101
  12. MEQUITAZINE [Concomitant]
     Indication: PREMEDICATION
     Dates: start: 20100312, end: 20100531
  13. DEXAMETHASONE SODIUM PHOSPHATE [Concomitant]
     Indication: PREMEDICATION
     Route: 041
     Dates: start: 20100312, end: 20100531

REACTIONS (1)
  - OEDEMA PERIPHERAL [None]
